FAERS Safety Report 5801451-0 (Version None)
Quarter: 2008Q3

REPORT INFORMATION
  Report Type: 
  Country: None (occurrence: None)
  Receive Date: 20080703
  Receipt Date: 20080703
  Transmission Date: 20090109
  Serious: Yes (Hospitalization)
  Sender: FDA-Public Use
  Company Number: None

PATIENT
  Age: 38 Year
  Sex: Male

DRUGS (1)
  1. HUMULIN 70/30 [Suspect]
     Indication: DIABETES MELLITUS
     Dosage: 200 UNITS  ONCE  SQ

REACTIONS (11)
  - AGITATION [None]
  - ALCOHOL USE [None]
  - ANGER [None]
  - BLOOD GLUCOSE DECREASED [None]
  - CONFUSIONAL STATE [None]
  - DEPENDENCE [None]
  - DRUG SCREEN POSITIVE [None]
  - EMOTIONAL DISORDER [None]
  - INTENTIONAL OVERDOSE [None]
  - SUBSTANCE ABUSE [None]
  - SUICIDE ATTEMPT [None]
